FAERS Safety Report 18334675 (Version 2)
Quarter: 2020Q4

REPORT INFORMATION
  Report Type: Spontaneous
  Country: US (occurrence: US)
  Receive Date: 20201001
  Receipt Date: 20201014
  Transmission Date: 20210113
  Serious: Yes (Hospitalization)
  Sender: FDA-Public Use
  Company Number: US-HORIZON-PRO-0218-2020

PATIENT
  Age: 24 Year
  Sex: Male

DRUGS (6)
  1. PROCYSBI [Suspect]
     Active Substance: CYSTEAMINE BITARTRATE
     Indication: CYSTINOSIS
  2. TACROLIMUS. [Concomitant]
     Active Substance: TACROLIMUS
  3. FAMOTIDINE. [Concomitant]
     Active Substance: FAMOTIDINE
  4. CYSTEAMINE HYDROCHLORIDE [Concomitant]
     Active Substance: CYSTEAMINE HYDROCHLORIDE
  5. ATENOLOL. [Concomitant]
     Active Substance: ATENOLOL
  6. MYCOPHENOLATE [Concomitant]
     Active Substance: MYCOPHENOLIC ACID

REACTIONS (15)
  - Alanine aminotransferase increased [Unknown]
  - Tachycardia [Recovering/Resolving]
  - Device occlusion [Recovering/Resolving]
  - Product dose omission issue [None]
  - Pneumonia [Recovered/Resolved]
  - Aspartate aminotransferase increased [Unknown]
  - Bronchospasm [Unknown]
  - Wrong technique in product usage process [None]
  - Cholecystitis [Recovered/Resolved]
  - Renal impairment [Recovered/Resolved]
  - Amino acid level increased [Unknown]
  - Infection [Unknown]
  - Incorrect dose administered [None]
  - Wrong technique in device usage process [Unknown]
  - Dyspnoea [Recovering/Resolving]

NARRATIVE: CASE EVENT DATE: 202003
